FAERS Safety Report 23718394 (Version 10)
Quarter: 2025Q1

REPORT INFORMATION
  Report Type: Spontaneous
  Country: KR (occurrence: KR)
  Receive Date: 20240408
  Receipt Date: 20250311
  Transmission Date: 20250408
  Serious: Yes (Other)
  Sender: PFIZER
  Company Number: KR-PFIZER INC-PV202400045697

PATIENT
  Age: 56 Year
  Sex: Female
  Weight: 50 kg

DRUGS (4)
  1. LORLATINIB [Suspect]
     Active Substance: LORLATINIB
     Indication: Lung neoplasm malignant
     Dosage: 100 MG 1X/DAY, AT THE SAME TIME, FOR 30 DAYS
     Route: 048
     Dates: start: 202404
  2. LORLATINIB [Suspect]
     Active Substance: LORLATINIB
     Dosage: 100 MG 1X/DAY, AT THE SAME TIME, FOR 7 DAYS
     Route: 048
     Dates: start: 202412
  3. LORLATINIB [Suspect]
     Active Substance: LORLATINIB
     Dosage: 100 MG 1X/DAY, AT THE SAME TIME, FOR 21 DAYS
     Route: 048
     Dates: start: 202412
  4. EPILATAM [Concomitant]
     Indication: Brain oedema
     Route: 048
     Dates: start: 202401

REACTIONS (7)
  - Angina pectoris [Unknown]
  - Pneumonia viral [Unknown]
  - Cardiac failure congestive [Unknown]
  - Pulmonary embolism [Unknown]
  - Depression [Unknown]
  - Systolic dysfunction [Unknown]
  - Cystitis [Unknown]

NARRATIVE: CASE EVENT DATE: 20240101
